FAERS Safety Report 5480909-0 (Version None)
Quarter: 2007Q4

REPORT INFORMATION
  Report Type: 
  Country: None (occurrence: None)
  Receive Date: 20071009
  Receipt Date: 20070928
  Transmission Date: 20080405
  Serious: Yes (Other)
  Sender: FDA-Public Use
  Company Number: BR-PFIZER INC-2007061213

PATIENT
  Sex: Female
  Weight: 77 kg

DRUGS (2)
  1. DEPO-PROVERA SUSPENSION/INJ [Suspect]
     Indication: CONTRACEPTION
     Dates: start: 20070420, end: 20070420
  2. DEPO-PROVERA SUSPENSION/INJ [Suspect]
     Dates: start: 20070717, end: 20070717

REACTIONS (8)
  - ACNE [None]
  - ANXIETY [None]
  - EATING DISORDER [None]
  - FLUID RETENTION [None]
  - INAPPROPRIATE SCHEDULE OF DRUG ADMINISTRATION [None]
  - METRORRHAGIA [None]
  - SWELLING [None]
  - WEIGHT INCREASED [None]
